FAERS Safety Report 24220556 (Version 1)
Quarter: 2024Q3

REPORT INFORMATION
  Report Type: Spontaneous
  Country: US (occurrence: US)
  Receive Date: 20240818
  Receipt Date: 20240818
  Transmission Date: 20241016
  Serious: Yes (Death, Hospitalization, Other)
  Sender: DR REDDYS
  Company Number: US-DRL-USA-LIT/USA/24/0011708

PATIENT
  Age: 64 Year
  Sex: Male

DRUGS (6)
  1. POSACONAZOLE [Suspect]
     Active Substance: POSACONAZOLE
     Indication: Histoplasmosis disseminated
  2. TACROLIMUS [Suspect]
     Active Substance: TACROLIMUS
     Indication: Immunosuppressant drug therapy
  3. AMPHOTERICIN B [Suspect]
     Active Substance: AMPHOTERICIN B
     Indication: Histoplasmosis disseminated
  4. MYCOPHENOLIC ACID [Suspect]
     Active Substance: MYCOPHENOLIC ACID
     Indication: Histoplasmosis disseminated
  5. PREDNISONE [Suspect]
     Active Substance: PREDNISONE
     Indication: Histoplasmosis disseminated
  6. REMDESIVIR [Concomitant]
     Active Substance: REMDESIVIR
     Indication: COVID-19

REACTIONS (7)
  - Abdominal pain [Fatal]
  - Haemodynamic instability [Fatal]
  - Drug ineffective for unapproved indication [Fatal]
  - Histoplasmosis disseminated [Unknown]
  - Pneumonia pneumococcal [Unknown]
  - Cytomegalovirus infection [Unknown]
  - COVID-19 [Unknown]
